FAERS Safety Report 24980407 (Version 1)
Quarter: 2025Q1

REPORT INFORMATION
  Report Type: Spontaneous
  Country: US (occurrence: None)
  Receive Date: 20250214
  Receipt Date: 20250214
  Transmission Date: 20250409
  Serious: No
  Sender: FDA-CTU
  Company Number: None

PATIENT
  Age: 47 Year
  Sex: Male

DRUGS (1)
  1. TEZSPIRE [Suspect]
     Active Substance: TEZEPELUMAB-EKKO
     Indication: Asthma
     Dosage: FREQUENCY : WEEKLY;?
     Route: 058
     Dates: start: 202412

REACTIONS (3)
  - Device leakage [None]
  - Drug delivery system malfunction [None]
  - Device deployment issue [None]

NARRATIVE: CASE EVENT DATE: 20250213
